FAERS Safety Report 5125208-1 (Version None)
Quarter: 2006Q4

REPORT INFORMATION
  Report Type: 
  Country: None (occurrence: None)
  Receive Date: 20061010
  Receipt Date: 20061010
  Transmission Date: 20070319
  Serious: Yes (Hospitalization)
  Sender: FDA-Public Use
  Company Number: None

PATIENT
  Age: 56 Year
  Sex: Male

DRUGS (10)
  1. FOSINOPRIL SODIUM [Suspect]
     Indication: HYPERTENSION
     Dosage: 10 MG QD
     Dates: start: 20050101
  2. HYDROCHLOROTHIAZIDE [Concomitant]
  3. METOPROLOL TARTRATE [Concomitant]
  4. DILANTIN [Concomitant]
  5. LACTULOSE [Concomitant]
  6. TRAMADOL HCL [Concomitant]
  7. CLARITIN [Concomitant]
  8. SERPQUEL [Concomitant]
  9. PIROXICAM [Concomitant]
  10. ZOLOFT [Concomitant]

REACTIONS (1)
  - ANGIONEUROTIC OEDEMA [None]
